FAERS Safety Report 6641528-3 (Version None)
Quarter: 2010Q1

REPORT INFORMATION
  Report Type: 
  Country: None (occurrence: None)
  Receive Date: 20100317
  Receipt Date: 20100317
  Transmission Date: 20100710
  Serious: No
  Sender: FDA-Public Use
  Company Number: None

PATIENT
  Sex: Female

DRUGS (1)
  1. ENBREL [Suspect]
     Indication: PSORIASIS
     Dosage: 50MG TWICE A WEEK SQ
     Route: 058
     Dates: start: 20100224, end: 20100224

REACTIONS (3)
  - DYSPNOEA [None]
  - SWELLING [None]
  - URTICARIA [None]
